FAERS Safety Report 10591068 (Version 1)
Quarter: 2014Q4

REPORT INFORMATION
  Report Type: Spontaneous
  Country: US (occurrence: None)
  Receive Date: 20141110
  Receipt Date: 20141110
  Transmission Date: 20150529
  Serious: Yes (Hospitalization)
  Sender: FDA-Public Use
  Company Number: CC400233569

PATIENT
  Age: 30 Year
  Sex: Female

DRUGS (2)
  1. CEFAZOLIN [Suspect]
     Active Substance: CEFAZOLIN
     Indication: PROPHYLAXIS
     Route: 042
     Dates: start: 20140915
  2. CEFAZOLIN [Suspect]
     Active Substance: CEFAZOLIN
     Indication: PREOPERATIVE CARE
     Route: 042
     Dates: start: 20140915

REACTIONS (3)
  - Peripheral swelling [None]
  - Throat irritation [None]
  - Dyspnoea [None]

NARRATIVE: CASE EVENT DATE: 20140915
